FAERS Safety Report 5717348-0 (Version None)
Quarter: 2008Q2

REPORT INFORMATION
  Report Type: 
  Country: None (occurrence: None)
  Receive Date: 20080425
  Receipt Date: 20080417
  Transmission Date: 20081010
  Serious: Yes (Other)
  Sender: FDA-Public Use
  Company Number: BR-BAYER-200813150LA

PATIENT
  Age: 54 Year
  Sex: Female
  Weight: 61 kg

DRUGS (2)
  1. ANGELIQ [Suspect]
     Indication: HORMONE REPLACEMENT THERAPY
     Route: 048
     Dates: start: 20080101, end: 20080101
  2. SYNTHROID [Concomitant]
     Indication: HYPOTHYROIDISM
     Route: 048
     Dates: start: 20070101

REACTIONS (9)
  - EYE HAEMORRHAGE [None]
  - EYE PAIN [None]
  - FATIGUE [None]
  - GENITAL HAEMORRHAGE [None]
  - HEADACHE [None]
  - METRORRHAGIA [None]
  - MOOD ALTERED [None]
  - PAIN IN EXTREMITY [None]
  - WEIGHT INCREASED [None]
